FAERS Safety Report 25910163 (Version 1)
Quarter: 2025Q4

REPORT INFORMATION
  Report Type: Spontaneous
  Country: EU (occurrence: EU)
  Receive Date: 20251012
  Receipt Date: 20251012
  Transmission Date: 20260117
  Serious: Yes (Hospitalization, Other)
  Sender: VERTEX
  Company Number: EU-VERTEX PHARMACEUTICALS-2025-016823

PATIENT
  Age: 0 Year
  Sex: Male

DRUGS (5)
  1. ELEXACAFTOR\IVACAFTOR\TEZACAFTOR [Suspect]
     Active Substance: ELEXACAFTOR\IVACAFTOR\TEZACAFTOR
     Indication: Cystic fibrosis
     Dosage: 75MG IVA/50MG/ TEZA100MG ELEXA; TWO TABS PER DAY
     Route: 064
     Dates: start: 20250806, end: 20250821
  2. ELEXACAFTOR\IVACAFTOR\TEZACAFTOR [Suspect]
     Active Substance: ELEXACAFTOR\IVACAFTOR\TEZACAFTOR
     Indication: Off label use
     Dosage: ONE TAB PER DAY IN AM
     Route: 064
     Dates: start: 20250822, end: 20250824
  3. ELEXACAFTOR\IVACAFTOR\TEZACAFTOR [Suspect]
     Active Substance: ELEXACAFTOR\IVACAFTOR\TEZACAFTOR
     Dosage: FULL DOSE
     Route: 064
     Dates: start: 20250825, end: 20250908
  4. KALYDECO [Suspect]
     Active Substance: IVACAFTOR
     Indication: Cystic fibrosis
     Dosage: ONE TAB IN THE EVENING
     Route: 064
     Dates: start: 20250806, end: 20250908
  5. KALYDECO [Suspect]
     Active Substance: IVACAFTOR
     Indication: Off label use

REACTIONS (1)
  - Meconium ileus [Not Recovered/Not Resolved]

NARRATIVE: CASE EVENT DATE: 20250908
